FAERS Safety Report 6196783-3 (Version None)
Quarter: 2009Q2

REPORT INFORMATION
  Report Type: 
  Country: None (occurrence: None)
  Receive Date: 20090520
  Receipt Date: 20090311
  Transmission Date: 20091009
  Serious: Yes (Hospitalization)
  Sender: FDA-Public Use
  Company Number: DE-BAYER-200915917GPV

PATIENT
  Age: 48 Year
  Sex: Male
  Weight: 72 kg

DRUGS (7)
  1. ACETYLSALICYLIC ACID [Suspect]
     Indication: PERIPHERAL ARTERIAL OCCLUSIVE DISEASE
     Route: 048
     Dates: start: 20020101
  2. PLAVIX [Suspect]
     Indication: PERIPHERAL ARTERIAL OCCLUSIVE DISEASE
     Route: 048
     Dates: start: 20020101
  3. ZOSTEX [Suspect]
     Indication: HERPES ZOSTER
     Route: 048
     Dates: start: 20081113, end: 20081218
  4. INSULIN NOVOLET [Concomitant]
     Indication: TYPE 2 DIABETES MELLITUS
     Route: 058
  5. LOCOL [Concomitant]
     Indication: HYPERLIPIDAEMIA
     Route: 048
     Dates: start: 20000101
  6. PANTOZOL [Concomitant]
     Indication: PROPHYLAXIS AGAINST GASTROINTESTINAL ULCER
     Route: 048
     Dates: start: 20081216
  7. RAMLPRLL [Concomitant]
     Indication: HYPERTENSION
     Route: 048
     Dates: start: 20000101

REACTIONS (2)
  - GASTRITIS [None]
  - PANCREATITIS ACUTE [None]
